FAERS Safety Report 24383946 (Version 2)
Quarter: 2024Q4

REPORT INFORMATION
  Report Type: Spontaneous
  Country: US (occurrence: US)
  Receive Date: 20241001
  Receipt Date: 20241004
  Transmission Date: 20250115
  Serious: No
  Sender: JOHNSON AND JOHNSON
  Company Number: US-JNJFOC-20240952240

PATIENT
  Age: 61 Year
  Sex: Female

DRUGS (2)
  1. REMICADE [Suspect]
     Active Substance: INFLIXIMAB
     Indication: Irritable bowel syndrome
     Route: 040
     Dates: start: 202406
  2. INFLIXIMAB [Suspect]
     Active Substance: INFLIXIMAB
     Indication: Irritable bowel syndrome
     Route: 065
     Dates: start: 202408

REACTIONS (2)
  - Therapeutic product effect decreased [Unknown]
  - Diarrhoea [Unknown]
